FAERS Safety Report 4459464-X (Version None)
Quarter: 2004Q3

REPORT INFORMATION
  Report Type: 
  Country: None (occurrence: None)
  Receive Date: 20040927
  Receipt Date: 20040915
  Transmission Date: 20050211
  Serious: Yes (Death, Other)
  Sender: FDA-Public Use
  Company Number: FR-ABBOTT-04P-056-0273655-00

PATIENT
  Sex: Male

DRUGS (7)
  1. DEPAKOTE [Suspect]
     Indication: BIPOLAR II DISORDER
     Route: 048
     Dates: start: 20040623, end: 20040719
  2. DEPAKOTE [Suspect]
     Route: 048
     Dates: start: 20040719, end: 20040806
  3. DEPAKOTE [Suspect]
     Route: 048
     Dates: start: 20040806, end: 20040818
  4. OLANZAPINE [Concomitant]
     Indication: DELUSION
     Route: 048
     Dates: start: 20040623, end: 20040701
  5. OLANZAPINE [Concomitant]
     Route: 048
     Dates: start: 20040701, end: 20040823
  6. PRAZEPAM [Concomitant]
     Indication: ANXIETY
     Route: 048
     Dates: start: 20040623, end: 20040701
  7. PRAZEPAM [Concomitant]
     Route: 048
     Dates: start: 20040701, end: 20040823

REACTIONS (2)
  - HEAD INJURY [None]
  - THROMBOCYTOPENIA [None]
